FAERS Safety Report 7029280-3 (Version None)
Quarter: 2010Q4

REPORT INFORMATION
  Report Type: 
  Country: None (occurrence: None)
  Receive Date: 20101005
  Receipt Date: 20100920
  Transmission Date: 20110411
  Serious: Yes (Hospitalization, Other)
  Sender: FDA-Public Use
  Company Number: PHEH2007US15443

PATIENT
  Sex: Female

DRUGS (28)
  1. ZOMETA [Suspect]
     Dosage: 4 MG, QMO
     Dates: start: 20020311
  2. GLUCOPHAGE [Concomitant]
     Dosage: UNK
  3. TAXOL [Concomitant]
     Dosage: 37.5 MG
  4. GLUCOTROL [Concomitant]
     Dosage: 10 MG
  5. PLAQUENIL [Concomitant]
     Dosage: UNK
  6. CYMBALTA [Concomitant]
     Dosage: 30 MG / DAILY
     Dates: start: 20050316
  7. CYMBALTA [Concomitant]
     Dosage: 60 MG / DAILY
     Dates: start: 20050301, end: 20050518
  8. CYMBALTA [Concomitant]
     Dosage: 90 MG / DAILY
     Dates: start: 20050518
  9. WELLBUTRIN [Concomitant]
     Dosage: 300 MG / DAILY
  10. PAXIL [Concomitant]
     Dosage: 37.5 MG
  11. ADVAIR DISKUS 100/50 [Concomitant]
     Dosage: 100/50
  12. CEPHALEXIN [Concomitant]
     Dosage: 500 MG / BID
     Dates: start: 20011115
  13. GUAIFENESIN LA [Concomitant]
     Dosage: 600 MG / BID
     Dates: start: 20011115
  14. DIFLUCAN [Concomitant]
     Dosage: UNK
  15. KENALOG [Concomitant]
     Dosage: 10 MG
  16. TEMOVATE [Concomitant]
     Dosage: UNK
  17. OXYCONTIN [Concomitant]
     Dosage: UNK
  18. ATIVAN [Concomitant]
  19. POLYETHYLENE GLYCOL [Concomitant]
  20. AMBIEN [Concomitant]
  21. OXYCODONE HYDROCHLORIDE [Concomitant]
  22. OXYCODONE AND ACETAMINOPHEN [Concomitant]
  23. NAPROSYN [Concomitant]
  24. METFORMIN [Concomitant]
  25. ANZEMET [Concomitant]
  26. DECADRON [Concomitant]
  27. ADRIAMYCIN PFS [Concomitant]
  28. TAXOTERE [Concomitant]

REACTIONS (39)
  - ABSCESS DRAINAGE [None]
  - ALOPECIA [None]
  - ANHEDONIA [None]
  - ANXIETY [None]
  - BACK PAIN [None]
  - BLOOD ALKALINE PHOSPHATASE INCREASED [None]
  - BONE DISORDER [None]
  - CELLULITIS [None]
  - CONJUNCTIVITIS [None]
  - DEBRIDEMENT [None]
  - DEPRESSION [None]
  - DIABETES MELLITUS [None]
  - DIABETIC FOOT [None]
  - ENCEPHALOPATHY [None]
  - FALL [None]
  - FOOT FRACTURE [None]
  - GINGIVAL EROSION [None]
  - HAEMATOCRIT DECREASED [None]
  - HAEMOGLOBIN DECREASED [None]
  - HEADACHE [None]
  - HORDEOLUM [None]
  - HYPERGLYCAEMIA [None]
  - INFLUENZA LIKE ILLNESS [None]
  - INJURY [None]
  - MENTAL STATUS CHANGES [None]
  - MUSCULAR WEAKNESS [None]
  - MUSCULOSKELETAL STIFFNESS [None]
  - NASAL POLYPS [None]
  - NEUROPATHY PERIPHERAL [None]
  - OSTEONECROSIS OF JAW [None]
  - PAIN [None]
  - PAIN IN EXTREMITY [None]
  - PNEUMONIA CRYPTOCOCCAL [None]
  - PROTEIN TOTAL INCREASED [None]
  - PULMONARY CONGESTION [None]
  - SINUS TACHYCARDIA [None]
  - SINUSITIS [None]
  - SKIN NECROSIS [None]
  - TOOTH EXTRACTION [None]
